FAERS Safety Report 6389441-3 (Version None)
Quarter: 2009Q4

REPORT INFORMATION
  Report Type: 
  Country: None (occurrence: None)
  Receive Date: 20091006
  Receipt Date: 20090928
  Transmission Date: 20100525
  Serious: No
  Sender: FDA-Public Use
  Company Number: US-B.I. PHARMACEUTICALS,INC./RIDGEFIELD-2009-BP-10985BP

PATIENT
  Sex: Male

DRUGS (9)
  1. SPIRIVA [Suspect]
  2. LISINOPRIL [Concomitant]
     Indication: HYPERTENSION
  3. ASCORBIC ACID [Concomitant]
     Indication: IMMUNE SYSTEM DISORDER
  4. VITAMIN [Concomitant]
     Indication: ROUTINE HEALTH MAINTENANCE
  5. RANITIDINE [Concomitant]
     Indication: GASTRIC ULCER
  6. KLOR-CON [Concomitant]
     Indication: MUSCLE SPASMS
  7. ASPIRIN [Concomitant]
     Indication: ANTICOAGULANT THERAPY
  8. FLOMAX [Concomitant]
     Indication: BLADDER DISORDER
  9. LORA TAB [Concomitant]
     Indication: PAIN

REACTIONS (1)
  - DYSPNOEA [None]
